FAERS Safety Report 4831039-X (Version None)
Quarter: 2005Q4

REPORT INFORMATION
  Report Type: 
  Country: None (occurrence: None)
  Receive Date: 20051115
  Receipt Date: 20051115
  Transmission Date: 20060501
  Serious: Yes (Life-Threatening)
  Sender: FDA-Public Use
  Company Number: None

PATIENT
  Sex: Male
  Weight: 76.2043 kg

DRUGS (1)
  1. PHOSPHATE [Suspect]

REACTIONS (9)
  - ABDOMINAL PAIN UPPER [None]
  - CARDIAC DISORDER [None]
  - DIARRHOEA [None]
  - DUODENAL ULCER [None]
  - FOOD ALLERGY [None]
  - MALAISE [None]
  - NEUROMYOPATHY [None]
  - PARKINSON'S DISEASE [None]
  - THERAPY NON-RESPONDER [None]
